FAERS Safety Report 4807768-0 (Version None)
Quarter: 2005Q4

REPORT INFORMATION
  Report Type: 
  Country: None (occurrence: None)
  Receive Date: 20051020
  Receipt Date: 20051006
  Transmission Date: 20060501
  Serious: Yes (Hospitalization)
  Sender: FDA-Public Use
  Company Number: 2005139315

PATIENT
  Age: 45 Year
  Sex: Female
  Weight: 63.5036 kg

DRUGS (2)
  1. ELLENCE [Suspect]
     Indication: BREAST CANCER
     Dosage: (CYCLIC), INTRAVENOUS
     Route: 042
     Dates: start: 20050829
  2. CYTOXAN [Suspect]
     Indication: BREAST CANCER
     Dosage: (CYCLIC), INTRAVENOUS
     Dates: start: 20050829

REACTIONS (3)
  - BACK PAIN [None]
  - STOMACH DISCOMFORT [None]
  - WRONG TECHNIQUE IN DRUG USAGE PROCESS [None]
